FAERS Safety Report 21048491 (Version 3)
Quarter: 2022Q4

REPORT INFORMATION
  Report Type: Spontaneous
  Country: JP (occurrence: JP)
  Receive Date: 20220706
  Receipt Date: 20221005
  Transmission Date: 20230112
  Serious: Yes (Other)
  Sender: FDA-Public Use
  Company Number: JP-SA-2022SA239233

PATIENT
  Age: 13 Month
  Sex: Female

DRUGS (2)
  1. SABRIL [Suspect]
     Active Substance: VIGABATRIN
     Indication: Infantile spasms
     Dosage: UNK
     Route: 048
     Dates: start: 202203, end: 20220725
  2. SABRIL [Suspect]
     Active Substance: VIGABATRIN
     Dosage: UNK
     Route: 048
     Dates: start: 20211214

REACTIONS (4)
  - Optic atrophy [Not Recovered/Not Resolved]
  - Fundoscopy abnormal [Unknown]
  - Retinogram abnormal [Unknown]
  - Retinogram abnormal [Recovering/Resolving]

NARRATIVE: CASE EVENT DATE: 20220607
